FAERS Safety Report 7301403-8 (Version None)
Quarter: 2011Q1

REPORT INFORMATION
  Report Type: 
  Country: None (occurrence: None)
  Receive Date: 20110218
  Receipt Date: 20110211
  Transmission Date: 20110831
  Serious: Yes (Other)
  Sender: FDA-Public Use
  Company Number: GB-TEVA-267279ISR

PATIENT
  Age: 37 Year
  Sex: Male

DRUGS (2)
  1. TRAMADOL [Suspect]
  2. PREGABALIN [Suspect]

REACTIONS (2)
  - ARRHYTHMIA [None]
  - VENTRICULAR EXTRASYSTOLES [None]
